FAERS Safety Report 21065184 (Version 1)
Quarter: 2022Q3

REPORT INFORMATION
  Report Type: Spontaneous
  Country: US (occurrence: None)
  Receive Date: 20220711
  Receipt Date: 20220711
  Transmission Date: 20221027
  Serious: No
  Sender: FDA-Public Use
  Company Number: None

PATIENT
  Sex: Female

DRUGS (1)
  1. BENLYSTA [Suspect]
     Active Substance: BELIMUMAB
     Indication: Lupus-like syndrome
     Dosage: FREQUENCY : WEEKLY;?
     Route: 058
     Dates: start: 20210318

REACTIONS (4)
  - Systemic lupus erythematosus [None]
  - Emotional distress [None]
  - Anger [None]
  - Suicidal ideation [None]
